FAERS Safety Report 8834564 (Version 2)
Quarter: 2013Q1

REPORT INFORMATION
  Report Type: Spontaneous
  Country: US (occurrence: None)
  Receive Date: 20120917
  Receipt Date: 20121026
  Transmission Date: 20140127
  Serious: Yes (Hospitalization)
  Sender: FDA-Public Use
  Company Number: 2012PROUSA01953

PATIENT
  Age: 66 Year
  Sex: Male

DRUGS (10)
  1. PROVENGE (SIPULEUCEL-T) SUSPENSION, 250ML [Suspect]
     Indication: PROSTATE CANCER METASTATIC
     Route: 042
     Dates: start: 20120816, end: 20120816
  2. DOXAZOSIN (DOXAZOSIN MESILATE) [Concomitant]
  3. CELEXA (CITALOPRAM HYDROBROMIDE) [Concomitant]
  4. MIRALAX (MACROGEL) [Concomitant]
  5. AMBIEN (ZOLPIDEM TARTRATE) [Concomitant]
  6. SENOKOT (SENNA ALEXANDRINA) [Concomitant]
  7. PERCOCET [Concomitant]
  8. ZOFRAN (ONDANSETRON HYDROCHLORIDE) [Concomitant]
  9. NITROGLYCERIN (GLYCERYL TRINITRATE) [Concomitant]
  10. TYLENOL (PARACETAMOL) [Concomitant]

REACTIONS (8)
  - Spinal fracture [None]
  - Syncope [None]
  - Dehydration [None]
  - Hypotension [None]
  - Spinal cord compression [None]
  - Metastases to spine [None]
  - Fall [None]
  - Prostate cancer [None]
